FAERS Safety Report 4331464-X (Version None)
Quarter: 2004Q1

REPORT INFORMATION
  Report Type: 
  Country: None (occurrence: None)
  Receive Date: 20040331
  Receipt Date: 20040319
  Transmission Date: 20041129
  Serious: Yes (Hospitalization)
  Sender: FDA-Public Use
  Company Number: 2004PK00536

PATIENT
  Age: 84 Year
  Sex: Male
  Weight: 85.6 kg

DRUGS (9)
  1. ACERBON ^ZENECA^ [Suspect]
     Indication: HYPERTENSION
     Dosage: 10  MG DAILY PO
     Route: 048
     Dates: start: 20000101
  2. ACTRAPID HUMAN [Suspect]
     Indication: DIABETES MELLITUS
     Dosage: 48 IU DAILY SQ
     Route: 058
     Dates: start: 20000101
  3. PROTAPHANE MC [Suspect]
     Indication: DIABETES MELLITUS
     Dosage: 28 IU DAILY SQ
     Route: 058
     Dates: start: 20000101, end: 20040202
  4. QUERTO [Suspect]
     Indication: HYPERTENSION
     Dosage: 12.5 MG DAILY PO
     Route: 048
     Dates: start: 20000101
  5. ALDACTONE [Concomitant]
  6. AQUAPHOR [Concomitant]
  7. ASS [Concomitant]
  8. DIGITOXIN INJ [Concomitant]
  9. SORTIS [Concomitant]

REACTIONS (6)
  - ARTERIOSCLEROSIS [None]
  - DRUG INTERACTION [None]
  - ENCEPHALOPATHY [None]
  - HYPOGLYCAEMIA [None]
  - MEDICATION ERROR [None]
  - VISUAL ACUITY REDUCED [None]
